FAERS Safety Report 7634379-4 (Version None)
Quarter: 2011Q3

REPORT INFORMATION
  Report Type: 
  Country: None (occurrence: None)
  Receive Date: 20110725
  Receipt Date: 20110720
  Transmission Date: 20111222
  Serious: Yes (Hospitalization)
  Sender: FDA-Public Use
  Company Number: CA-ABBOTT-11P-028-0840788-00

PATIENT
  Sex: Female
  Weight: 63.56 kg

DRUGS (1)
  1. MERIDIA [Suspect]
     Indication: PRODUCT USED FOR UNKNOWN INDICATION
     Route: 048

REACTIONS (4)
  - COUGH [None]
  - DYSPNOEA [None]
  - PALPITATIONS [None]
  - SYNCOPE [None]
